FAERS Safety Report 17512352 (Version 1)
Quarter: 2020Q1

REPORT INFORMATION
  Report Type: Spontaneous
  Country: GB (occurrence: GB)
  Receive Date: 20200306
  Receipt Date: 20200306
  Transmission Date: 20200409
  Serious: Yes (Other)
  Sender: FDA-Public Use
  Company Number: GB-MYLANLABS-2020M1023505

PATIENT
  Age: 33 Year
  Sex: Male

DRUGS (3)
  1. PREDNISOLONE                       /00016204/ [Suspect]
     Active Substance: PREDNISOLONE
     Indication: SYMPATHETIC OPHTHALMIA
     Dosage: UNK
     Route: 047
  2. AZATHIOPRINE. [Suspect]
     Active Substance: AZATHIOPRINE
     Indication: SYMPATHETIC OPHTHALMIA
     Dosage: UNK
     Route: 048
  3. PREDNISOLONE. [Suspect]
     Active Substance: PREDNISOLONE
     Indication: SYMPATHETIC OPHTHALMIA
     Dosage: UNK
     Route: 048

REACTIONS (2)
  - Glaucoma [Unknown]
  - Off label use [Unknown]
